FAERS Safety Report 9467391 (Version 6)
Quarter: 2014Q2

REPORT INFORMATION
  Report Type: Report from Study
  Country: DE (occurrence: DE)
  Receive Date: 20130821
  Receipt Date: 20140403
  Transmission Date: 20141212
  Serious: Yes (Hospitalization)
  Sender: FDA-Public Use
  Company Number: DE-ROCHE-1263782

PATIENT
  Age: 60 Year
  Sex: Female
  Weight: 69 kg

DRUGS (6)
  1. BEVACIZUMAB [Suspect]
     Indication: OVARIAN CANCER
     Dosage: LAST DOSE WAS TAKEN ON 04/JUL/2013
     Route: 042
     Dates: start: 20130313
  2. BEVACIZUMAB [Suspect]
     Dosage: LAST DOSE WAS TAKEN ON 03/APR/2013
     Route: 042
     Dates: start: 20130312
  3. CARBOPLATIN [Suspect]
     Indication: OVARIAN CANCER
     Dosage: LAST DOSE WAS TAKEN ON 13/JUN/2013
     Route: 042
     Dates: start: 20130220
  4. CARBOPLATIN [Suspect]
     Dosage: LAST DOSE WAS TAKEN ON 03/APR/2013
     Route: 042
     Dates: start: 20130220
  5. PACLITAXEL [Suspect]
     Indication: OVARIAN CANCER
     Dosage: LAST DOSE WAS TAKEN ON 13/JUN/2013
     Route: 042
     Dates: start: 20130220
  6. PACLITAXEL [Suspect]
     Dosage: LAST DOSE WAS TAKEN ON 03/APR/2013
     Route: 042
     Dates: start: 20130220

REACTIONS (2)
  - Incisional hernia [Recovered/Resolved]
  - Post procedural fistula [Recovered/Resolved]
